FAERS Safety Report 19626199 (Version 1)
Quarter: 2021Q3

REPORT INFORMATION
  Report Type: Spontaneous
  Country: NO (occurrence: NO)
  Receive Date: 20210729
  Receipt Date: 20210729
  Transmission Date: 20211014
  Serious: Yes (Other)
  Sender: FDA-Public Use
  Company Number: NO-TEVA-2021-NO-1937258

PATIENT
  Age: 34 Year
  Sex: Male

DRUGS (2)
  1. OLANZAPINE TEVA [Suspect]
     Active Substance: OLANZAPINE
     Indication: PRODUCT USED FOR UNKNOWN INDICATION
     Dosage: 2,5MG, 4 TABLETS A DAY.
     Route: 065
     Dates: start: 20200715
  2. ZYPREXA [Interacting]
     Active Substance: OLANZAPINE
     Route: 065

REACTIONS (4)
  - Drug interaction [Unknown]
  - Depression [Unknown]
  - Weight increased [Recovering/Resolving]
  - Suicidal ideation [Unknown]
